FAERS Safety Report 21064751 (Version 1)
Quarter: 2022Q3

REPORT INFORMATION
  Report Type: Spontaneous
  Country: GB (occurrence: GB)
  Receive Date: 20220711
  Receipt Date: 20220711
  Transmission Date: 20221026
  Serious: Yes (Other)
  Sender: FDA-Public Use
  Company Number: GB-NOVARTISPH-NVSC2022GB156449

PATIENT
  Age: 58 Year
  Sex: Male

DRUGS (1)
  1. BIMATOPROST [Suspect]
     Active Substance: BIMATOPROST
     Indication: Product used for unknown indication
     Dosage: UNK (AS DIRECTED)
     Route: 065

REACTIONS (5)
  - Eye pain [Recovered/Resolved]
  - Visual impairment [Recovered/Resolved]
  - Ocular discomfort [Recovered/Resolved]
  - Vitreous floaters [Not Recovered/Not Resolved]
  - Medication error [Unknown]
